FAERS Safety Report 4859728-1 (Version None)
Quarter: 2005Q4

REPORT INFORMATION
  Report Type: 
  Country: None (occurrence: None)
  Receive Date: 20051219
  Receipt Date: 20051207
  Transmission Date: 20060501
  Serious: Yes (Hospitalization)
  Sender: FDA-Public Use
  Company Number: FR-BRISTOL-MYERS SQUIBB COMPANY-13207667

PATIENT
  Age: 55 Year
  Sex: Female

DRUGS (6)
  1. ELISOR TABS [Suspect]
     Route: 048
     Dates: start: 20050905, end: 20051018
  2. PLAVIX [Suspect]
     Route: 048
     Dates: start: 20050905, end: 20051018
  3. LUDIOMIL [Suspect]
     Indication: DEPRESSION
     Dates: end: 20051018
  4. CORVASAL [Suspect]
     Dates: end: 20051016
  5. KARDEGIC [Concomitant]
     Dates: start: 20050905, end: 20051018
  6. SECTRAL [Concomitant]
     Dates: start: 20050905

REACTIONS (1)
  - NEUTROPENIA [None]
